FAERS Safety Report 5566709-1 (Version None)
Quarter: 2007Q4

REPORT INFORMATION
  Report Type: 
  Country: None (occurrence: None)
  Receive Date: 20071218
  Receipt Date: 20071218
  Transmission Date: 20080405
  Serious: Yes (Hospitalization, Other)
  Sender: FDA-Public Use
  Company Number: None

PATIENT
  Age: 65 Year
  Sex: Female
  Weight: 68.0396 kg

DRUGS (2)
  1. DULOXETINE    60 MG [Suspect]
     Indication: DIABETIC NEUROPATHY
     Dosage: 60 MG  DAILY  PO
     Route: 048
  2. CIPROFLOXACIN [Concomitant]

REACTIONS (3)
  - FALL [None]
  - STRESS CARDIOMYOPATHY [None]
  - TROPONIN I INCREASED [None]
